FAERS Safety Report 7046832-5 (Version None)
Quarter: 2010Q4

REPORT INFORMATION
  Report Type: 
  Country: None (occurrence: None)
  Receive Date: 20101015
  Receipt Date: 20101007
  Transmission Date: 20110411
  Serious: Yes (Hospitalization)
  Sender: FDA-Public Use
  Company Number: US-JNJFOC-20101002049

PATIENT
  Sex: Male
  Weight: 99.79 kg

DRUGS (4)
  1. DURAGESIC MATRIX [Suspect]
     Indication: MUSCULOSKELETAL PAIN
     Dosage: 25 UG/HR 12.5UG/HR
     Route: 062
  2. DURAGESIC MATRIX [Suspect]
     Indication: NECK PAIN
     Dosage: 25 UG/HR 12.5UG/HR
     Route: 062
  3. DURAGESIC MATRIX [Suspect]
     Indication: BACK PAIN
     Dosage: 25 UG/HR 12.5UG/HR
     Route: 062
  4. UNKNOWN MEDICATION [Concomitant]
     Route: 065

REACTIONS (2)
  - INFLAMMATION [None]
  - PRODUCT ADHESION ISSUE [None]
